FAERS Safety Report 5426342-9 (Version None)
Quarter: 2007Q3

REPORT INFORMATION
  Report Type: 
  Country: None (occurrence: None)
  Receive Date: 20070827
  Receipt Date: 20070821
  Transmission Date: 20080115
  Serious: Yes (Hospitalization)
  Sender: FDA-Public Use
  Company Number: PHBS2007JP14071

PATIENT
  Age: 89 Year
  Sex: Female

DRUGS (4)
  1. DIOVAN [Suspect]
     Indication: HYPERTENSION
     Dosage: 40 MG/DAY
     Route: 048
     Dates: end: 20070816
  2. DILTIAZEM HCL [Concomitant]
     Dosage: 90 MG/DAY
     Route: 048
  3. DILTIAZEM HCL [Concomitant]
     Dosage: 100 MG/DAY
     Route: 048
     Dates: end: 20070816
  4. DOXAZOSIN MESYLATE [Concomitant]
     Route: 048

REACTIONS (6)
  - ATRIOVENTRICULAR BLOCK COMPLETE [None]
  - BLOOD CREATININE INCREASED [None]
  - BLOOD POTASSIUM INCREASED [None]
  - CARDIAC PACEMAKER INSERTION [None]
  - HYPERKALAEMIA [None]
  - SINUS BRADYCARDIA [None]
